FAERS Safety Report 11414229 (Version 2)
Quarter: 2015Q3

REPORT INFORMATION
  Report Type: Spontaneous
  Country: US (occurrence: US)
  Receive Date: 20150824
  Receipt Date: 20150918
  Transmission Date: 20151125
  Serious: No
  Sender: FDA-Public Use
  Company Number: US-LUNDBECK-DKLU2000807

PATIENT
  Sex: Female

DRUGS (2)
  1. NORTHERA [Suspect]
     Active Substance: DROXIDOPA
     Indication: DYSKINESIA
  2. NORTHERA [Suspect]
     Active Substance: DROXIDOPA
     Indication: EXTRAPYRAMIDAL DISORDER
     Route: 048
     Dates: start: 20150625

REACTIONS (1)
  - Hallucination [Recovered/Resolved]
